FAERS Safety Report 13518256 (Version 1)
Quarter: 2017Q2

REPORT INFORMATION
  Report Type: Spontaneous
  Country: US (occurrence: US)
  Receive Date: 20170505
  Receipt Date: 20170505
  Transmission Date: 20170830
  Serious: No
  Sender: FDA-Public Use
  Company Number: US-LEADIANT BIOSCIENCES INC-2017STPI000013

PATIENT
  Sex: Female

DRUGS (5)
  1. ADAGEN [Suspect]
     Active Substance: PEGADEMASE BOVINE
     Indication: COMBINED IMMUNODEFICIENCY
  2. HYDROCHLOROTHIAZIDE. [Concomitant]
     Active Substance: HYDROCHLOROTHIAZIDE
     Indication: PRODUCT USED FOR UNKNOWN INDICATION
  3. ADAGEN [Suspect]
     Active Substance: PEGADEMASE BOVINE
     Indication: IMMUNODEFICIENCY
     Dosage: 6 ML, QW
     Route: 030
     Dates: start: 20140806
  4. SEASONIQUE [Concomitant]
     Active Substance: ETHINYL ESTRADIOL\LEVONORGESTREL
     Indication: PRODUCT USED FOR UNKNOWN INDICATION
  5. HYDROXYZINE [Concomitant]
     Active Substance: HYDROXYZINE HYDROCHLORIDE
     Indication: PRODUCT USED FOR UNKNOWN INDICATION

REACTIONS (1)
  - Injection site mass [Not Recovered/Not Resolved]
